FAERS Safety Report 9871755 (Version 1)
Quarter: 2014Q1

REPORT INFORMATION
  Report Type: Spontaneous
  Country: US (occurrence: US)
  Receive Date: 20140205
  Receipt Date: 20140205
  Transmission Date: 20141002
  Serious: No
  Sender: FDA-Public Use
  Company Number: US-AMGEN-USASP2013036421

PATIENT
  Sex: Female

DRUGS (2)
  1. NEULASTA [Suspect]
     Indication: PRODUCT USED FOR UNKNOWN INDICATION
     Dosage: 6 MG, 24 HOURS AFTER CHEMO
     Route: 065
  2. CHEMOTHERAPEUTICS [Concomitant]
     Indication: BREAST CANCER STAGE III
     Dosage: UNK

REACTIONS (3)
  - Headache [Unknown]
  - Arthralgia [Unknown]
  - Myalgia [Unknown]
